FAERS Safety Report 7958624 (Version 6)
Quarter: 2014Q3

REPORT INFORMATION
  Report Type: Spontaneous
  Country: US (occurrence: US)
  Receive Date: 20110524
  Receipt Date: 20140910
  Transmission Date: 20150326
  Serious: Yes (Death, Hospitalization, Congenital Anomaly, Other)
  Sender: FDA-Public Use
  Company Number: US-PFIZER INC-2011105842

PATIENT
  Sex: Male
  Weight: 4.5 kg

DRUGS (21)
  1. TYLENOL [Concomitant]
     Active Substance: ACETAMINOPHEN
     Indication: PAIN
     Dosage: 650 MG, EVERY FOUR HOURS WHEN NEEDED
     Route: 064
  2. COLACE [Concomitant]
     Active Substance: DOCUSATE SODIUM
     Indication: CONSTIPATION
     Dosage: 100 MG, 2X/DAY
     Route: 064
     Dates: start: 20090320, end: 20090321
  3. POLYETHYLENE GLYCOL [Concomitant]
     Active Substance: POLYETHYLENE GLYCOLS
     Dosage: 17 G, EVERY DAY FOR ONE WEEK
     Route: 064
     Dates: start: 20090321, end: 20090324
  4. YAZ [Concomitant]
     Active Substance: DROSPIRENONE\ETHINYL ESTRADIOL
     Dosage: UNK
     Route: 064
  5. IBUPROFEN. [Concomitant]
     Active Substance: IBUPROFEN
     Dosage: UNK
     Route: 064
  6. WELLBUTRIN XL [Concomitant]
     Active Substance: BUPROPION HYDROCHLORIDE
     Dosage: UNK
     Route: 064
  7. SULFAMETHOXAZOLE-TRIMETHOPRIM (SMZ) [Concomitant]
     Active Substance: SULFAMETHOXAZOLE\TRIMETHOPRIM
     Dosage: UNK
     Route: 064
  8. AZITHROMYCIN [Concomitant]
     Active Substance: AZITHROMYCIN ANHYDROUS
     Dosage: UNK
     Route: 064
  9. CITRACAL PRENATAL [Concomitant]
     Dosage: UNK
     Route: 064
  10. EFFEXOR XR [Suspect]
     Active Substance: VENLAFAXINE HYDROCHLORIDE
     Indication: DEPRESSION
     Dosage: 150 MG
     Route: 064
     Dates: start: 2008
  11. AMBIEN [Concomitant]
     Active Substance: ZOLPIDEM TARTRATE
     Indication: SLEEP DISORDER
     Dosage: 5 MG, WHEN NEEDED AT BEDTIME
     Route: 064
     Dates: start: 20090319, end: 20090325
  12. PRENATAL VITAMINS [Concomitant]
     Active Substance: VITAMINS
     Dosage: ONE TABLET, ONCE DAILY
     Route: 064
     Dates: start: 20090322, end: 20090328
  13. MAGNESIUM [Concomitant]
     Active Substance: MAGNESIUM
     Indication: CONSTIPATION
     Dosage: 10 ML, EVERY 6 HOURS WHEN NEEDED
     Route: 064
     Dates: start: 20090321, end: 20090325
  14. KETOROLAC TROMETHAMINE. [Concomitant]
     Active Substance: KETOROLAC TROMETHAMINE
     Dosage: UNK,
     Route: 064
  15. EFFEXOR XR [Suspect]
     Active Substance: VENLAFAXINE HYDROCHLORIDE
     Dosage: 150 MG, 1X/DAY
     Route: 064
     Dates: start: 20080422
  16. FLUTICASONE NASAL [Concomitant]
     Dosage: UNK
     Route: 064
  17. OXYCODONE/APAP [Concomitant]
     Active Substance: ACETAMINOPHEN\OXYCODONE HYDROCHLORIDE
     Dosage: UNK
     Route: 064
  18. PATANASE [Concomitant]
     Active Substance: OLOPATADINE HYDROCHLORIDE
     Dosage: UNK
     Route: 064
  19. EFFEXOR [Suspect]
     Active Substance: VENLAFAXINE HYDROCHLORIDE
     Dosage: UNK
     Route: 064
     Dates: start: 2008
  20. VENLAFAXINE HCL [Suspect]
     Active Substance: VENLAFAXINE HYDROCHLORIDE
     Dosage: UNK
     Route: 064
     Dates: start: 2008
  21. TUMS [Concomitant]
     Active Substance: CALCIUM CARBONATE
     Dosage: UNK
     Route: 064

REACTIONS (18)
  - Tricuspid valve incompetence [Unknown]
  - Pericardial effusion [Unknown]
  - Dilatation atrial [Unknown]
  - Right ventricular hypertrophy [Unknown]
  - Respiratory failure [Unknown]
  - Neonatal tachycardia [Unknown]
  - Atrial septal defect [Unknown]
  - Premature baby [Unknown]
  - Hypoglycaemia [Unknown]
  - Cardiomegaly [Unknown]
  - Pulmonary artery stenosis [Unknown]
  - Tachypnoea [Unknown]
  - Foetal exposure during pregnancy [Fatal]
  - Pulmonary artery atresia [Fatal]
  - Tricuspid valve disease [Fatal]
  - Contusion [Unknown]
  - Patent ductus arteriosus [Unknown]
  - Macrosomia [Unknown]

NARRATIVE: CASE EVENT DATE: 20090325
